FAERS Safety Report 6269745-5 (Version None)
Quarter: 2009Q3

REPORT INFORMATION
  Report Type: 
  Country: None (occurrence: None)
  Receive Date: 20090716
  Receipt Date: 20090708
  Transmission Date: 20100115
  Serious: Yes (Other)
  Sender: FDA-Public Use
  Company Number: US-ASTRAZENECA-2009UW12921

PATIENT
  Age: 567 Month
  Sex: Female
  Weight: 97.1 kg

DRUGS (4)
  1. SEROQUEL [Suspect]
     Indication: BIPOLAR DISORDER
     Dosage: 400 MG TO 800 MG
     Route: 048
     Dates: start: 20020101
  2. RISPERDAL [Concomitant]
     Dates: end: 20010101
  3. ZYPREXA [Concomitant]
     Dates: start: 20000101
  4. HALDOL [Concomitant]
     Dates: start: 20020101

REACTIONS (3)
  - GALLBLADDER DISORDER [None]
  - NECK INJURY [None]
  - TYPE 2 DIABETES MELLITUS [None]
